FAERS Safety Report 4414364-6 (Version None)
Quarter: 2004Q2

REPORT INFORMATION
  Report Type: 
  Country: None (occurrence: None)
  Receive Date: 20040630
  Receipt Date: 20040303
  Transmission Date: 20050107
  Serious: No
  Sender: FDA-Public Use
  Company Number: 04P-163-0252098-00

PATIENT
  Age: 38 Year
  Sex: Female

DRUGS (7)
  1. HUMIRA [Suspect]
     Indication: RHEUMATOID ARTHRITIS
     Dosage: 40 MG, 1 IN 2 WK, SUBCUTANEOUS
     Route: 058
     Dates: start: 20031201, end: 20040301
  2. SINGULAIR [Concomitant]
  3. CETIRIZINE HCL [Concomitant]
  4. YASMIN [Concomitant]
  5. MELOXICAM [Concomitant]
  6. LYSINE [Concomitant]
  7. VICODIN [Concomitant]

REACTIONS (5)
  - ARTHRITIS [None]
  - BRONCHOSPASM [None]
  - LYMPHADENOPATHY [None]
  - PNEUMONIA [None]
  - VIRAL INFECTION [None]
